FAERS Safety Report 14519263 (Version 1)
Quarter: 2018Q1

REPORT INFORMATION
  Report Type: Spontaneous
  Country: FR (occurrence: FR)
  Receive Date: 20180212
  Receipt Date: 20180212
  Transmission Date: 20180509
  Serious: Yes (Other)
  Sender: FDA-Public Use
  Company Number: FR-PFIZER INC-2018056408

PATIENT
  Age: 60 Year
  Sex: Female

DRUGS (4)
  1. LOVENOX [Concomitant]
     Active Substance: ENOXAPARIN SODIUM
     Indication: THROMBOSIS PROPHYLAXIS
     Dosage: 0.4 ML, 1X/DAY
     Route: 058
     Dates: start: 20171130
  2. RIFADINE /00146902/ [Suspect]
     Active Substance: RIFAMPIN SODIUM
     Indication: OSTEOMYELITIS
     Dosage: 1200 MG, 1X/DAY
     Route: 048
     Dates: start: 20171210, end: 20171218
  3. VANCOMYCIN HCL [Suspect]
     Active Substance: VANCOMYCIN HYDROCHLORIDE
     Indication: OSTEOMYELITIS
     Dosage: 2500 MG, 1X/DAY
     Route: 042
     Dates: start: 20171206, end: 20171227
  4. PARACETAMOL [Concomitant]
     Active Substance: ACETAMINOPHEN
     Dosage: UNK

REACTIONS (3)
  - Mixed liver injury [Recovered/Resolved]
  - Neck pain [Recovered/Resolved]
  - Rash erythematous [Recovered/Resolved]

NARRATIVE: CASE EVENT DATE: 20171218
